FAERS Safety Report 10565196 (Version 1)
Quarter: 2014Q4

REPORT INFORMATION
  Report Type: Spontaneous
  Country: US (occurrence: None)
  Receive Date: 20141104
  Receipt Date: 20141104
  Transmission Date: 20150529
  Serious: Yes (Hospitalization)
  Sender: FDA-Public Use
  Company Number: None

PATIENT
  Age: 66 Year
  Sex: Female
  Weight: 70.8 kg

DRUGS (2)
  1. ALIMTA [Suspect]
     Active Substance: PEMETREXED DISODIUM
     Dosage: TOTAL DOSE ADMINISTERED 915 MG
  2. BEVACIZUMAB (RHUMAB VEGF) [Suspect]
     Active Substance: BEVACIZUMAB
     Dosage: TOTAL DOSE ADMINISTERED WAS 1085 MG

REACTIONS (9)
  - Cough [None]
  - Lung consolidation [None]
  - Supraventricular tachycardia [None]
  - Respiratory distress [None]
  - Atrial fibrillation [None]
  - Mediastinal shift [None]
  - Lethargy [None]
  - Wheezing [None]
  - Dyspnoea at rest [None]

NARRATIVE: CASE EVENT DATE: 20141026
